FAERS Safety Report 8607582-4 (Version None)
Quarter: 2012Q3

REPORT INFORMATION
  Report Type: 
  Country: None (occurrence: None)
  Receive Date: 20120821
  Receipt Date: 20120815
  Transmission Date: 20120928
  Serious: No
  Sender: FDA-Public Use
  Company Number: US-BAYER-2012-084750

PATIENT
  Age: 61 Year
  Sex: Female
  Weight: 102 kg

DRUGS (5)
  1. HYDROCHLOROTHIAZIDE [Concomitant]
     Dosage: 25 MG, UNK
  2. MULTI-VITAMIN [Concomitant]
  3. ALEVE (CAPLET) [Suspect]
     Indication: MYALGIA
     Dosage: 4 DF, UNK
     Route: 048
  4. SERTRALINE HYDROCHLORIDE [Concomitant]
     Dosage: 100 MG, UNK
  5. LISINOPRIL [Concomitant]
     Dosage: 5 MG, UNK

REACTIONS (1)
  - NO ADVERSE EVENT [None]
